FAERS Safety Report 5744210-X (Version None)
Quarter: 2008Q2

REPORT INFORMATION
  Report Type: 
  Country: None (occurrence: None)
  Receive Date: 20080520
  Receipt Date: 20080515
  Transmission Date: 20081010
  Serious: Yes (Hospitalization)
  Sender: FDA-Public Use
  Company Number: IN-AVENTIS-200814554GDDC

PATIENT
  Age: 53 Year
  Sex: Female
  Weight: 58.7 kg

DRUGS (3)
  1. CODE UNBROKEN [Suspect]
     Indication: DIABETES MELLITUS
  2. METFORMIN HCL [Suspect]
     Indication: DIABETES MELLITUS
     Route: 048
  3. CODE UNBROKEN [Suspect]
     Dates: start: 20080409, end: 20080416

REACTIONS (4)
  - DIARRHOEA [None]
  - GASTRITIS [None]
  - NAUSEA [None]
  - VOMITING [None]
